FAERS Safety Report 14172605 (Version 1)
Quarter: 2017Q4

REPORT INFORMATION
  Report Type: Spontaneous
  Country: US (occurrence: None)
  Receive Date: 20171108
  Receipt Date: 20171108
  Transmission Date: 20180321
  Serious: Yes (Hospitalization, Disabling)
  Sender: FDA-Public Use
  Company Number: None

PATIENT
  Age: 67 Year
  Sex: Male

DRUGS (10)
  1. SYNTHROID [Concomitant]
     Active Substance: LEVOTHYROXINE SODIUM
  2. ASPIRIN. [Concomitant]
     Active Substance: ASPIRIN
  3. CENTRAL VITE [Concomitant]
  4. OXYBUTININ [Concomitant]
     Active Substance: OXYBUTYNIN
  5. DEPAKOTE [Concomitant]
     Active Substance: DIVALPROEX SODIUM
  6. HALOPERIDOL PILLS AND INJECTIONS [Suspect]
     Active Substance: HALOPERIDOL
     Indication: BIPOLAR DISORDER
     Dates: start: 20151001, end: 20170801
  7. METROPOLOL [Concomitant]
     Active Substance: METOPROLOL
  8. SINNIMET [Concomitant]
  9. KLONIPIN [Suspect]
     Active Substance: CLONAZEPAM
  10. LOSARTIN [Concomitant]
     Active Substance: LOSARTAN

REACTIONS (1)
  - Parkinsonism [None]
